FAERS Safety Report 7928713-5 (Version None)
Quarter: 2011Q4

REPORT INFORMATION
  Report Type: 
  Country: None (occurrence: None)
  Receive Date: 20111118
  Receipt Date: 20111117
  Transmission Date: 20120403
  Serious: Yes (Other)
  Sender: FDA-Public Use
  Company Number: ES-PFIZER INC-2011224371

PATIENT
  Age: 72 Year
  Sex: Female

DRUGS (3)
  1. BISOPROLOL FUMARATE [Suspect]
     Dosage: UNK
     Dates: start: 20060525, end: 20090801
  2. BISOPROLOL FUMARATE [Suspect]
     Dosage: 7.5 MG, UNK
     Dates: start: 20090801, end: 20090912
  3. BISOPROLOL FUMARATE [Suspect]
     Indication: ATRIAL FIBRILLATION
     Dosage: 5 MG, DAILY
     Dates: start: 20060130, end: 20060208

REACTIONS (1)
  - BRADYCARDIA [None]
